FAERS Safety Report 19097482 (Version 1)
Quarter: 2021Q2

REPORT INFORMATION
  Report Type: Spontaneous
  Country: US (occurrence: US)
  Receive Date: 20210406
  Receipt Date: 20210406
  Transmission Date: 20210717
  Serious: Yes (Hospitalization)
  Sender: FDA-Public Use
  Company Number: None

PATIENT
  Age: 73 Year
  Sex: Female
  Weight: 73.1 kg

DRUGS (1)
  1. CARBOPLATIN. [Suspect]
     Active Substance: CARBOPLATIN
     Indication: LUNG NEOPLASM MALIGNANT
     Dosage: ?          OTHER FREQUENCY:WEEKLY;?
     Route: 042
     Dates: start: 20210324, end: 20210324

REACTIONS (8)
  - Abdominal discomfort [None]
  - Infusion related reaction [None]
  - Dyspnoea [None]
  - Tachycardia [None]
  - Cough [None]
  - Throat irritation [None]
  - Flushing [None]
  - Tachypnoea [None]

NARRATIVE: CASE EVENT DATE: 20210324
